FAERS Safety Report 17597654 (Version 1)
Quarter: 2020Q1

REPORT INFORMATION
  Report Type: Report from Study
  Country: IT (occurrence: IT)
  Receive Date: 20200330
  Receipt Date: 20200330
  Transmission Date: 20200409
  Serious: Yes (Hospitalization)
  Sender: FDA-Public Use
  Company Number: IT-ACCORD-177563

PATIENT
  Age: 68 Year
  Sex: Female

DRUGS (2)
  1. CISPLATIN ACCORD [Suspect]
     Active Substance: CISPLATIN
     Indication: BILIARY NEOPLASM
     Dosage: STRENGTH: 1 MG / ML, CONCENTRATE FOR SOLUTION
     Route: 042
     Dates: start: 20190930, end: 20200116
  2. GEMCITABINE. [Suspect]
     Active Substance: GEMCITABINE
     Indication: BILIARY NEOPLASM
     Dosage: STRENGTH: 1 G
     Route: 042
     Dates: start: 20190930, end: 20200116

REACTIONS (3)
  - Cardiac failure [Recovered/Resolved with Sequelae]
  - Off label use [Unknown]
  - Dyspnoea [Recovered/Resolved with Sequelae]

NARRATIVE: CASE EVENT DATE: 20200129
